FAERS Safety Report 4847645-2 (Version None)
Quarter: 2005Q4

REPORT INFORMATION
  Report Type: 
  Country: None (occurrence: None)
  Receive Date: 20051205
  Receipt Date: 20051121
  Transmission Date: 20060501
  Serious: Yes (Death)
  Sender: FDA-Public Use
  Company Number: 2005152025

PATIENT
  Age: 78 Year
  Sex: Male

DRUGS (2)
  1. XALATAN [Suspect]
     Indication: GLAUCOMA
     Dosage: ONE DROP (INTERVAL:  DAILY), OPHTHALMIC
     Route: 047
     Dates: start: 19970101, end: 19980101
  2. MEDICINES FOR HEART PROBLEM (ALL OTHER THERAPEUTIC PRODUCTS) [Concomitant]

REACTIONS (2)
  - CARDIAC VALVE DISEASE [None]
  - MYOCARDIAL INFARCTION [None]
